FAERS Safety Report 9619318 (Version 1)
Quarter: 2013Q4

REPORT INFORMATION
  Report Type: Spontaneous
  Country: TW (occurrence: TW)
  Receive Date: 20131014
  Receipt Date: 20131014
  Transmission Date: 20140711
  Serious: Yes (Other)
  Sender: FDA-Public Use
  Company Number: TW-PFIZER INC-2013289152

PATIENT
  Age: 54 Year
  Sex: Female

DRUGS (2)
  1. PACLITAXEL [Suspect]
     Indication: SARCOMA UTERUS
     Dosage: UNK, CYCLIC
  2. IFOSFAMIDE [Suspect]
     Indication: SARCOMA UTERUS
     Dosage: UNK, CYCLIC

REACTIONS (2)
  - Neutropenic sepsis [Unknown]
  - Nail disorder [Unknown]
